FAERS Safety Report 16887915 (Version 1)
Quarter: 2019Q4

REPORT INFORMATION
  Report Type: Spontaneous
  Country: GB (occurrence: GB)
  Receive Date: 20191006
  Receipt Date: 20191006
  Transmission Date: 20200122
  Serious: Yes (Other)
  Sender: FDA-Public Use
  Company Number: GB-DEXPHARM-20190847

PATIENT
  Age: 88 Year
  Sex: Male

DRUGS (9)
  1. LANSOPRAZOLE. [Concomitant]
     Active Substance: LANSOPRAZOLE
  2. PARACETAMOL [Concomitant]
     Active Substance: ACETAMINOPHEN
  3. ATENOLOL. [Concomitant]
     Active Substance: ATENOLOL
  4. DONEPEZIL. [Concomitant]
     Active Substance: DONEPEZIL
  5. FUROSEMIDE. [Concomitant]
     Active Substance: FUROSEMIDE
  6. CHLORHEXIDINE [Suspect]
     Active Substance: CHLORHEXIDINE
     Indication: DENTAL DISORDER PROPHYLAXIS
     Route: 048
  7. DIGOXIN. [Concomitant]
     Active Substance: DIGOXIN
  8. ATORVASTATIN [Concomitant]
     Active Substance: ATORVASTATIN
  9. WARFARIN [Concomitant]
     Active Substance: WARFARIN

REACTIONS (2)
  - Mouth haemorrhage [Unknown]
  - Enanthema [Unknown]

NARRATIVE: CASE EVENT DATE: 20190831
